FAERS Safety Report 26133945 (Version 1)
Quarter: 2025Q4

REPORT INFORMATION
  Report Type: Report from Study
  Country: EU (occurrence: EU)
  Receive Date: 20251209
  Receipt Date: 20251209
  Transmission Date: 20260118
  Serious: Yes (Death, Other)
  Sender: CELLTRION
  Company Number: EU-ROCHE-10000001394

PATIENT

DRUGS (16)
  1. BEVACIZUMAB [Suspect]
     Active Substance: BEVACIZUMAB
     Indication: Hepatocellular carcinoma
     Dosage: 1100 MG
     Route: 065
     Dates: start: 20230619
  2. ATEZOLIZUMAB [Suspect]
     Active Substance: ATEZOLIZUMAB
     Indication: Hepatocellular carcinoma
     Dosage: 1200 MG
     Route: 065
     Dates: start: 20230619
  3. METFORMIN [Concomitant]
     Active Substance: METFORMIN HYDROCHLORIDE
     Dosage: EVERY 0.5 DAY
  4. LEVOTHYROXINE SODIUM [Concomitant]
     Active Substance: LEVOTHYROXINE SODIUM
     Dosage: EVERY 1 DAY
  5. SORAFENIB [Concomitant]
     Active Substance: SORAFENIB
     Dosage: UNK
     Dates: start: 20231113, end: 20240205
  6. LENVATINIB [Concomitant]
     Active Substance: LENVATINIB
  7. INSULIN GLARGINE [Concomitant]
     Active Substance: INSULIN GLARGINE
     Dosage: EVERY 1 DAY
     Dates: start: 20240214, end: 20240227
  8. SODIUM CHLORIDE [Concomitant]
     Active Substance: SODIUM CHLORIDE
     Dosage: EVERY 1 DAY
     Dates: start: 20240213, end: 20240215
  9. DEXAMETHASONE [Concomitant]
     Active Substance: DEXAMETHASONE
     Dosage: EVERY 1 DAY
     Dates: start: 20240213, end: 20240221
  10. ENOXAPARIN [Concomitant]
     Active Substance: ENOXAPARIN
     Dosage: EVERY 1 DAY
     Dates: start: 20240213, end: 20240227
  11. INSULIN ASPART [Concomitant]
     Active Substance: INSULIN ASPART
     Dosage: UNK
     Dates: start: 20240214, end: 20240227
  12. ACTRAPID [Concomitant]
     Active Substance: INSULIN HUMAN
  13. PREDNICARBATE [Concomitant]
     Active Substance: PREDNICARBATE
     Dosage: EVERY 1 DAY
     Dates: start: 20231127
  14. MYCOSTATIN [Concomitant]
     Active Substance: NYSTATIN
     Dosage: EVERY 1 DAY
     Dates: start: 20231127
  15. BUDESONIDE [Concomitant]
     Active Substance: BUDESONIDE
     Dosage: EVERY 1 DAY
     Dates: start: 20231211
  16. CEFTRIAXONE [Concomitant]
     Active Substance: CEFTRIAXONE
     Dosage: EVERY 1 DAY
     Dates: start: 20240213, end: 20240215

REACTIONS (3)
  - Death [Fatal]
  - Asthenia [Not Recovered/Not Resolved]
  - Intentional product use issue [Unknown]

NARRATIVE: CASE EVENT DATE: 20240205
